FAERS Safety Report 10078634 (Version 2)
Quarter: 2014Q2

REPORT INFORMATION
  Report Type: Report from Study
  Country: US (occurrence: US)
  Receive Date: 20140415
  Receipt Date: 20140415
  Transmission Date: 20141212
  Serious: Yes (Other)
  Sender: FDA-Public Use
  Company Number: US-ROCHE-1188076

PATIENT
  Age: 62 Year
  Sex: Female
  Weight: 39.95 kg

DRUGS (11)
  1. XELODA [Suspect]
     Indication: BREAST CANCER METASTATIC
     Route: 048
     Dates: start: 20130131
  2. XELODA [Suspect]
     Route: 048
     Dates: start: 20130201, end: 20130301
  3. XELODA [Suspect]
     Dosage: 500 MG IN AM
     Route: 048
     Dates: start: 20130304
  4. XELODA [Suspect]
     Dosage: 1000 MG HS
     Route: 048
     Dates: start: 20130304
  5. XELODA [Suspect]
     Route: 048
     Dates: start: 20130801
  6. HERCEPTIN [Suspect]
     Indication: BREAST CANCER METASTATIC
     Route: 042
     Dates: start: 20101101, end: 20130201
  7. HERCEPTIN [Suspect]
     Route: 042
     Dates: start: 20130201
  8. HERCEPTIN [Suspect]
     Route: 042
     Dates: start: 20130201
  9. KADCYLA [Suspect]
     Indication: BREAST CANCER
     Route: 042
     Dates: start: 20140227
  10. TYLENOL [Concomitant]
     Indication: PYREXIA
     Route: 048
     Dates: start: 20101108
  11. RADIATION [Concomitant]

REACTIONS (17)
  - Bronchitis [Unknown]
  - Pyrexia [Unknown]
  - Obstruction [Unknown]
  - Blood bilirubin increased [Unknown]
  - Jaundice [Unknown]
  - Pruritus [Recovered/Resolved]
  - Heart rate increased [Not Recovered/Not Resolved]
  - Glossodynia [Not Recovered/Not Resolved]
  - Pyrexia [Recovered/Resolved]
  - Nail disorder [Not Recovered/Not Resolved]
  - Peripheral swelling [Not Recovered/Not Resolved]
  - Oropharyngeal pain [Not Recovered/Not Resolved]
  - Mucosal inflammation [Not Recovered/Not Resolved]
  - Rhinorrhoea [Not Recovered/Not Resolved]
  - Nasopharyngitis [Not Recovered/Not Resolved]
  - Fatigue [Not Recovered/Not Resolved]
  - Fatigue [Not Recovered/Not Resolved]
